FAERS Safety Report 15386963 (Version 5)
Quarter: 2019Q1

REPORT INFORMATION
  Report Type: Spontaneous
  Country: US (occurrence: US)
  Receive Date: 20180914
  Receipt Date: 20190102
  Transmission Date: 20190417
  Serious: Yes (Death, Hospitalization)
  Sender: FDA-Public Use
  Company Number: US-PFIZER INC-2018367391

PATIENT
  Age: 41 Year
  Sex: Male

DRUGS (20)
  1. MIDAZOLAM [Suspect]
     Active Substance: MIDAZOLAM HYDROCHLORIDE
     Indication: PARTIAL SEIZURES
     Dosage: UNK (INFUSIONS)
  2. LEVETIRACETAM. [Concomitant]
     Active Substance: LEVETIRACETAM
     Indication: PARTIAL SEIZURES
     Dosage: UNK
  3. CLOBAZAM. [Concomitant]
     Active Substance: CLOBAZAM
     Indication: PARTIAL SEIZURES
     Dosage: UNK
  4. CLONAZEPAM. [Concomitant]
     Active Substance: CLONAZEPAM
     Indication: PARTIAL SEIZURES
  5. KETAMINE HCL [Suspect]
     Active Substance: KETAMINE HYDROCHLORIDE
     Indication: ADJUVANT THERAPY
     Dosage: 3 MG/KG, UNK, (BOLUS OF 3 MG/KG OF KETAMINE)
  6. GABAPENTIN. [Concomitant]
     Active Substance: GABAPENTIN
     Indication: PARTIAL SEIZURES
     Dosage: UNK
  7. TOPIRAMATE. [Concomitant]
     Active Substance: TOPIRAMATE
     Indication: PARTIAL SEIZURES
     Dosage: UNK
  8. SULTHIAME [Concomitant]
     Active Substance: SULTHIAME
     Indication: PARTIAL SEIZURES
  9. KETAMINE HCL [Suspect]
     Active Substance: KETAMINE HYDROCHLORIDE
     Dosage: UNK(UP-TITRATION OF KETAMINE TO 4 MG/KG/HOUR)
  10. NITRAZEPAM [Concomitant]
     Active Substance: NITRAZEPAM
     Indication: PARTIAL SEIZURES
     Dosage: UNK
  11. PHENYTOIN. [Concomitant]
     Active Substance: PHENYTOIN
     Indication: PARTIAL SEIZURES
     Dosage: UNK
  12. PROPOFOL. [Concomitant]
     Active Substance: PROPOFOL
     Indication: PARTIAL SEIZURES
     Dosage: UNK (INFUSIONS)
  13. FOSPHENYTOIN [Concomitant]
     Active Substance: FOSPHENYTOIN
     Indication: PARTIAL SEIZURES
     Dosage: UNK
  14. VALPROIC ACID. [Concomitant]
     Active Substance: VALPROIC ACID
     Indication: PARTIAL SEIZURES
     Dosage: UNK
  15. LACOSAMIDE. [Concomitant]
     Active Substance: LACOSAMIDE
     Indication: PARTIAL SEIZURES
     Dosage: UNK
  16. KETAMINE HCL [Suspect]
     Active Substance: KETAMINE HYDROCHLORIDE
     Dosage: UNK (INFUSION OF 1.5 MG/KG/HOUR)
  17. KETAMINE HCL [Suspect]
     Active Substance: KETAMINE HYDROCHLORIDE
     Dosage: UNK (UP-TITRATING BY 0.5 MG/KG/HOUR)
  18. CARBAMAZEPINE. [Concomitant]
     Active Substance: CARBAMAZEPINE
     Indication: PARTIAL SEIZURES
     Dosage: UNK
  19. PHENOBARBITONE [PHENOBARBITAL] [Concomitant]
     Indication: PARTIAL SEIZURES
  20. EPINEPHRINE. [Concomitant]
     Active Substance: EPINEPHRINE
     Indication: PARTIAL SEIZURES

REACTIONS (5)
  - Pulseless electrical activity [Fatal]
  - Hypothermia [Unknown]
  - Metabolic acidosis [Fatal]
  - Circulatory collapse [Fatal]
  - Pneumothorax [Unknown]
